FAERS Safety Report 4762875-6 (Version None)
Quarter: 2005Q3

REPORT INFORMATION
  Report Type: 
  Country: None (occurrence: None)
  Receive Date: 20050907
  Receipt Date: 20050829
  Transmission Date: 20060218
  Serious: Yes (Death)
  Sender: FDA-Public Use
  Company Number: PHBS2005FR12978

PATIENT
  Age: 65 Year
  Sex: Female

DRUGS (1)
  1. IMATINIB [Suspect]
     Indication: CHRONIC MYELOID LEUKAEMIA
     Dosage: 600 MG/D

REACTIONS (3)
  - LYMPHADENOPATHY [None]
  - METASTATIC SQUAMOUS CELL CARCINOMA [None]
  - RECURRENT CANCER [None]
